FAERS Safety Report 8158402-6 (Version None)
Quarter: 2012Q1

REPORT INFORMATION
  Report Type: 
  Country: None (occurrence: None)
  Receive Date: 20120223
  Receipt Date: 20120214
  Transmission Date: 20120608
  Serious: Yes (Hospitalization)
  Sender: FDA-Public Use
  Company Number: US-BAYER-2011-046212

PATIENT
  Age: 38 Year
  Sex: Female
  Weight: 58 kg

DRUGS (10)
  1. GAS-X [Concomitant]
     Dosage: UNK
     Route: 048
     Dates: end: 20071009
  2. PRILOSEC [Concomitant]
     Dosage: 20 MG, QD
     Route: 048
     Dates: start: 20071009
  3. PERCOCET [Concomitant]
     Indication: MUSCULOSKELETAL PAIN
     Dosage: UNK
     Dates: start: 20060428, end: 20071009
  4. IBUPROFEN (ADVIL) [Concomitant]
     Indication: PAIN
     Dosage: 200 MG, UNK
     Route: 048
     Dates: end: 20071009
  5. DEXAMETHASONE [Concomitant]
     Indication: MUSCULOSKELETAL PAIN
     Dosage: 4 MG/ML, UNK
     Route: 048
     Dates: start: 20070901, end: 20071009
  6. ZANTAC [Concomitant]
     Indication: DYSPEPSIA
     Dosage: 150 MG, QD
     Dates: end: 20071009
  7. LORAZEPAM [Concomitant]
     Indication: DEPRESSION
     Dosage: 0.5 MG, UNK
     Route: 048
     Dates: start: 20060310, end: 20100101
  8. YASMIN [Suspect]
     Indication: CONTRACEPTION
     Dosage: UNK
     Dates: start: 20031126, end: 20071010
  9. LORAZEPAM [Concomitant]
     Indication: ANXIETY
  10. ACETAMINOPHEN [Concomitant]
     Indication: PAIN
     Dosage: UNK
     Dates: end: 20071009

REACTIONS (9)
  - EMOTIONAL DISTRESS [None]
  - DEEP VEIN THROMBOSIS [None]
  - MUSCULOSKELETAL PAIN [None]
  - MUSCLE SPASMS [None]
  - PAIN IN EXTREMITY [None]
  - INJURY [None]
  - OEDEMA PERIPHERAL [None]
  - PYREXIA [None]
  - PAIN [None]
